FAERS Safety Report 6737960-X (Version None)
Quarter: 2010Q2

REPORT INFORMATION
  Report Type: 
  Country: None (occurrence: None)
  Receive Date: 20100524
  Receipt Date: 20100407
  Transmission Date: 20101027
  Serious: Yes (Hospitalization, Other)
  Sender: FDA-Public Use
  Company Number: A0854525A

PATIENT
  Sex: Female

DRUGS (1)
  1. ARZERRA [Suspect]
     Dosage: 300MG CYCLIC
     Route: 042
     Dates: start: 20100301

REACTIONS (1)
  - PYREXIA [None]
